FAERS Safety Report 11578203 (Version 1)
Quarter: 2015Q3

REPORT INFORMATION
  Report Type: Spontaneous
  Country: US (occurrence: US)
  Receive Date: 20150916
  Receipt Date: 20150916
  Transmission Date: 20151125
  Serious: No
  Sender: FDA-Public Use
  Company Number: US-ELI_LILLY_AND_COMPANY-US201307000262

PATIENT
  Age: 72 Year
  Sex: Male
  Weight: 78.01 kg

DRUGS (1)
  1. HUMALOG [Suspect]
     Active Substance: INSULIN LISPRO
     Dosage: 25.3 U, PRN
     Route: 058

REACTIONS (4)
  - Blood glucose increased [Recovered/Resolved]
  - Drug dose omission [Unknown]
  - Scar [Unknown]
  - Blood glucose decreased [Unknown]

NARRATIVE: CASE EVENT DATE: 20130626
